FAERS Safety Report 5080797-0 (Version None)
Quarter: 2006Q3

REPORT INFORMATION
  Report Type: 
  Country: None (occurrence: None)
  Receive Date: 20060810
  Receipt Date: 20060731
  Transmission Date: 20061208
  Serious: Yes (Other)
  Sender: FDA-Public Use
  Company Number: 14530

PATIENT
  Sex: Male

DRUGS (1)
  1. VINCRISTINE [Suspect]

REACTIONS (2)
  - COLITIS [None]
  - IMMUNOSUPPRESSION [None]
